FAERS Safety Report 23225088 (Version 1)
Quarter: 2023Q4

REPORT INFORMATION
  Report Type: Spontaneous
  Country: CN (occurrence: CN)
  Receive Date: 20231124
  Receipt Date: 20231124
  Transmission Date: 20240109
  Serious: Yes (Other)
  Sender: FDA-Public Use
  Company Number: CN-ROCHE-3463079

PATIENT
  Age: 70 Year
  Sex: Female
  Weight: 46 kg

DRUGS (3)
  1. XELODA [Suspect]
     Active Substance: CAPECITABINE
     Indication: Breast cancer
     Dosage: APPROVAL NO. GYZZ H20073024; FREQUENCY: BID
     Route: 065
     Dates: start: 20231013, end: 20231104
  2. TRASTUZUMAB [Suspect]
     Active Substance: TRASTUZUMAB
     Indication: Breast cancer
     Dosage: APPROVAL NO. GYZZ J20180073; ROUTE: INTRAVENOUS INFUSION
     Route: 042
     Dates: start: 20231013, end: 20231013
  3. DOCETAXEL [Suspect]
     Active Substance: DOCETAXEL\DOCETAXEL ANHYDROUS
     Indication: Breast cancer
     Dosage: APPROVAL NO. GYZZ H20183209; ROUTE: INTRAVENOUS INFUSION;
     Route: 042
     Dates: start: 20231013, end: 20231013

REACTIONS (1)
  - Drug eruption [Recovering/Resolving]

NARRATIVE: CASE EVENT DATE: 20231019
